FAERS Safety Report 16410231 (Version 1)
Quarter: 2019Q3

REPORT INFORMATION
  Report Type: Spontaneous
  Country: US (occurrence: US)
  Receive Date: 20190607
  Receipt Date: 20190607
  Transmission Date: 20191004
  Serious: No
  Sender: FDA-Public Use
  Company Number: None

PATIENT
  Age: 30 Year
  Sex: Female

DRUGS (1)
  1. CITALOPRAM HBR 10 MG TABLET [Suspect]
     Active Substance: CITALOPRAM HYDROBROMIDE
     Indication: DEPRESSION
     Dosage: ?          QUANTITY:1 TABLET(S);?           THERAPY ONGOING: Y
     Route: 048
     Dates: start: 20190219, end: 20190607

REACTIONS (1)
  - Alopecia [None]

NARRATIVE: CASE EVENT DATE: 20190525
